FAERS Safety Report 23728059 (Version 1)
Quarter: 2024Q2

REPORT INFORMATION
  Report Type: Spontaneous
  Country: US (occurrence: US)
  Receive Date: 20240410
  Receipt Date: 20240410
  Transmission Date: 20240716
  Serious: No
  Sender: FDA-Public Use
  Company Number: US-BRISTOL-MYERS SQUIBB COMPANY-2024-056199

PATIENT
  Age: 72 Year
  Sex: Female

DRUGS (1)
  1. ABRAXANE [Suspect]
     Active Substance: PACLITAXEL
     Indication: Ductal adenocarcinoma of pancreas
     Dosage: DOSE : 180 MG;     FREQ : 180 MG DAY 1 AND 15TH EVERY 4 WEEKS
     Route: 042
     Dates: start: 20240124

REACTIONS (1)
  - Off label use [Unknown]
